FAERS Safety Report 18816727 (Version 2)
Quarter: 2023Q4

REPORT INFORMATION
  Report Type: Spontaneous
  Country: US (occurrence: US)
  Receive Date: 20210201
  Receipt Date: 20231208
  Transmission Date: 20240110
  Serious: Yes (Hospitalization, Other)
  Sender: FDA-Public Use
  Company Number: US-PFIZER INC-2021071413

PATIENT
  Age: 70 Year
  Sex: Female

DRUGS (5)
  1. IBRANCE [Suspect]
     Active Substance: PALBOCICLIB
     Indication: Breast cancer female
     Dosage: 125 MG, CYCLIC [TAKE ONE CAPSULE DAILY X21 DAYS ON, 7 DAYS OFF EVERY 28 DAYS]
     Route: 048
     Dates: start: 20210114
  2. FEMARA [Concomitant]
     Active Substance: LETROZOLE
     Dosage: UNK, DAILY
     Dates: start: 20210114
  3. FASLODEX [Concomitant]
     Active Substance: FULVESTRANT
     Dosage: UNK
     Dates: start: 20230502
  4. LETROZOLE [Concomitant]
     Active Substance: LETROZOLE
     Dosage: UNK
  5. HYCLATE [Concomitant]
     Dosage: UNK

REACTIONS (7)
  - Pneumonia [Recovering/Resolving]
  - Leukopenia [Unknown]
  - Neoplasm progression [Unknown]
  - Illness [Unknown]
  - Fall [Recovering/Resolving]
  - Anaemia [Unknown]
  - Eye injury [Unknown]
